FAERS Safety Report 7207625-9 (Version None)
Quarter: 2011Q1

REPORT INFORMATION
  Report Type: 
  Country: None (occurrence: None)
  Receive Date: 20110103
  Receipt Date: 20101223
  Transmission Date: 20110831
  Serious: Yes (Other)
  Sender: FDA-Public Use
  Company Number: US-ASTRAZENECA-2010SE61045

PATIENT
  Age: 85 Year
  Sex: Male

DRUGS (3)
  1. PRILOSEC OTC [Suspect]
     Route: 048
     Dates: start: 20101215, end: 20101217
  2. ENTOCORT EC [Concomitant]
  3. BLOOD THINNER [Concomitant]

REACTIONS (5)
  - INCOHERENT [None]
  - PALLOR [None]
  - HYPERHIDROSIS [None]
  - LOSS OF CONSCIOUSNESS [None]
  - ATRIAL FIBRILLATION [None]
